FAERS Safety Report 6314745-X (Version None)
Quarter: 2009Q3

REPORT INFORMATION
  Report Type: 
  Country: None (occurrence: None)
  Receive Date: 20090817
  Receipt Date: 20090803
  Transmission Date: 20100115
  Serious: Yes (Other)
  Sender: FDA-Public Use
  Company Number: ENT 2009-0128

PATIENT
  Age: 85 Year
  Sex: Male

DRUGS (2)
  1. COMTAN [Suspect]
     Indication: PARKINSON'S DISEASE
     Dosage: 800 MG
     Dates: start: 20090521
  2. EUPRESSYL [Concomitant]

REACTIONS (2)
  - ASTHENIA [None]
  - WEIGHT DECREASED [None]
